FAERS Safety Report 6840876-1 (Version None)
Quarter: 2010Q3

REPORT INFORMATION
  Report Type: 
  Country: None (occurrence: None)
  Receive Date: 20100714
  Receipt Date: 20070620
  Transmission Date: 20110219
  Serious: No
  Sender: FDA-Public Use
  Company Number: US-PFIZER INC-2007052283

PATIENT
  Sex: Female
  Weight: 118.18 kg

DRUGS (4)
  1. CHANTIX [Suspect]
     Indication: SMOKING CESSATION THERAPY
     Dates: start: 20070501
  2. VALSARTAN [Concomitant]
  3. TOPAMAX [Concomitant]
  4. CYMBALTA [Concomitant]

REACTIONS (9)
  - ABNORMAL DREAMS [None]
  - DIARRHOEA [None]
  - FATIGUE [None]
  - FLATULENCE [None]
  - HYPERCHLORHYDRIA [None]
  - INFLUENZA LIKE ILLNESS [None]
  - MIDDLE INSOMNIA [None]
  - NAUSEA [None]
  - POOR QUALITY SLEEP [None]
